FAERS Safety Report 8487972-3 (Version None)
Quarter: 2012Q3

REPORT INFORMATION
  Report Type: 
  Country: None (occurrence: None)
  Receive Date: 20120705
  Receipt Date: 20120628
  Transmission Date: 20120928
  Serious: Yes (Hospitalization, Other)
  Sender: FDA-Public Use
  Company Number: PHHY2011JP18638

PATIENT
  Age: 46 Year
  Sex: Female

DRUGS (4)
  1. ZOMETA [Suspect]
     Indication: METASTASES TO BONE
     Dosage: 4 MG, DAILY
     Route: 041
     Dates: start: 20070401, end: 20110201
  2. HERCEPTIN [Concomitant]
     Indication: BREAST CANCER
     Route: 042
  3. AREDIA [Suspect]
     Indication: METASTASES TO BONE
     Dosage: 90 MG, DAILY
     Route: 041
     Dates: start: 20050101, end: 20070401
  4. ZOLADEX [Concomitant]
     Indication: BREAST CANCER
     Route: 042

REACTIONS (2)
  - ATYPICAL FEMUR FRACTURE [None]
  - FALL [None]
